FAERS Safety Report 5269079-1 (Version None)
Quarter: 2007Q1

REPORT INFORMATION
  Report Type: 
  Country: None (occurrence: None)
  Receive Date: 20070319
  Receipt Date: 20070305
  Transmission Date: 20070707
  Serious: Yes (Other)
  Sender: FDA-Public Use
  Company Number: US-ELI_LILLY_AND_COMPANY-US200703001081

PATIENT
  Age: 80 Year
  Sex: Male
  Weight: 47 kg

DRUGS (5)
  1. CYMBALTA [Suspect]
     Indication: DEPRESSION
     Dosage: 60 MG, EACH MORNING
     Dates: start: 20061228
  2. TYLENOL                                 /SCH/ [Concomitant]
     Dosage: UNK, AS NEEDED
  3. HALDOL [Concomitant]
     Dosage: UNK, AS NEEDED
  4. HYDROCHLOROTHIAZIDE [Concomitant]
     Dosage: 12.5 MG, DAILY (1/D)
  5. MIRTAZAPINE [Concomitant]
     Dosage: 7.5 MG, DAILY (1/D)

REACTIONS (1)
  - FAECAL INCONTINENCE [None]
